FAERS Safety Report 7529702-5 (Version None)
Quarter: 2011Q2

REPORT INFORMATION
  Report Type: 
  Country: None (occurrence: None)
  Receive Date: 20110607
  Receipt Date: 20110530
  Transmission Date: 20111010
  Serious: No
  Sender: FDA-Public Use
  Company Number: B0703803A

PATIENT
  Sex: Male

DRUGS (16)
  1. NORVASC [Concomitant]
     Indication: HYPERTENSION
     Dosage: 5MG PER DAY
     Route: 048
  2. MEXITIL [Concomitant]
     Indication: DIABETIC NEUROPATHY
     Dosage: 100MG PER DAY
     Route: 048
  3. METHYCOBAL [Concomitant]
     Indication: DIABETIC NEUROPATHY
     Dosage: 1500MCG PER DAY
     Route: 048
  4. DEPAS [Concomitant]
     Indication: INSOMNIA
     Dosage: 1.5MG PER DAY
     Route: 048
  5. TRIAZOLAM [Concomitant]
     Indication: INSOMNIA
     Dosage: .125MG PER DAY
     Route: 048
  6. OLOPATADINE HCL [Concomitant]
     Dosage: 10MG PER DAY
     Route: 048
  7. LANDSEN [Concomitant]
     Indication: DIABETIC NEUROPATHY
     Dosage: 2.25MG PER DAY
     Route: 048
  8. BASEN [Concomitant]
     Indication: DIABETES MELLITUS
     Dosage: .4MG PER DAY
     Route: 048
  9. PRORENAL [Concomitant]
     Indication: DIABETIC NEUROPATHY
     Dosage: 15MCG PER DAY
     Route: 048
  10. GLYBURIDE [Concomitant]
     Indication: DIABETES MELLITUS
     Dosage: 1.25MG PER DAY
     Route: 048
  11. TICLOPIDINE HCL [Concomitant]
     Indication: ANGINA PECTORIS
     Dosage: 100MG PER DAY
     Route: 048
  12. JUVELA [Concomitant]
     Indication: DIABETIC NEUROPATHY
     Dosage: 600MG PER DAY
     Route: 048
  13. RABEPRAZOLE SODIUM [Concomitant]
     Indication: GASTRITIS
     Dosage: 10MG PER DAY
     Route: 048
  14. ONON [Concomitant]
     Dosage: 450MG PER DAY
     Route: 048
  15. LAMICTAL [Suspect]
     Indication: EPILEPSY
     Dosage: 25MG ALTERNATE DAYS
     Route: 048
     Dates: start: 20110219, end: 20110301
  16. NICORANDIL [Concomitant]
     Indication: ANGINA PECTORIS
     Dosage: 10MG PER DAY
     Route: 048

REACTIONS (6)
  - EYE PRURITUS [None]
  - SKIN FISSURES [None]
  - EYE DISORDER [None]
  - SWELLING FACE [None]
  - RASH [None]
  - PARAESTHESIA ORAL [None]
